FAERS Safety Report 21060229 (Version 6)
Quarter: 2024Q1

REPORT INFORMATION
  Report Type: Spontaneous
  Country: US (occurrence: US)
  Receive Date: 20220708
  Receipt Date: 20240129
  Transmission Date: 20240410
  Serious: Yes (Hospitalization)
  Sender: FDA-Public Use
  Company Number: US-SA-SAC20220705001105

PATIENT
  Age: 66 Year
  Sex: Female

DRUGS (3)
  1. ENJAYMO [Suspect]
     Active Substance: SUTIMLIMAB-JOME
     Indication: Autoimmune haemolytic anaemia
     Dosage: 7.5 G, QOW
     Route: 042
     Dates: start: 20220406, end: 2022
  2. ENJAYMO [Suspect]
     Active Substance: SUTIMLIMAB-JOME
     Dosage: 7.5 G, QOW
     Route: 042
     Dates: start: 20220604, end: 20240102
  3. ENJAYMO [Suspect]
     Active Substance: SUTIMLIMAB-JOME
     Dosage: 7.5 G, QOW
     Route: 042

REACTIONS (4)
  - SARS-CoV-2 test positive [Unknown]
  - Surgery [Unknown]
  - Weight decreased [Unknown]
  - Influenza [Unknown]

NARRATIVE: CASE EVENT DATE: 20220101
